FAERS Safety Report 10264243 (Version 1)
Quarter: 2014Q2

REPORT INFORMATION
  Report Type: Spontaneous
  Country: FR (occurrence: FR)
  Receive Date: 20140627
  Receipt Date: 20140627
  Transmission Date: 20141212
  Serious: Yes (Hospitalization)
  Sender: FDA-Public Use
  Company Number: FR-ROCHE-1423031

PATIENT
  Age: 65 Year
  Sex: Female

DRUGS (11)
  1. MABTHERA [Suspect]
     Indication: NON-HODGKIN^S LYMPHOMA
     Route: 041
     Dates: start: 20140530, end: 20140530
  2. UROMITEXAN [Suspect]
     Indication: NON-HODGKIN^S LYMPHOMA
     Route: 042
     Dates: start: 20140530, end: 20140530
  3. ENDOXAN [Suspect]
     Indication: NON-HODGKIN^S LYMPHOMA
     Route: 042
     Dates: start: 20140530, end: 20140530
  4. CEFTRIAXONE [Suspect]
     Indication: PROPHYLAXIS
     Route: 042
     Dates: start: 20140530, end: 20140602
  5. DOXORUBICINE [Suspect]
     Indication: NON-HODGKIN^S LYMPHOMA
     Route: 042
     Dates: start: 20140530, end: 20140530
  6. CYTARABINE [Suspect]
     Indication: NON-HODGKIN^S LYMPHOMA
     Route: 037
     Dates: start: 20140530, end: 20140530
  7. VINCRISTINE [Suspect]
     Indication: NON-HODGKIN^S LYMPHOMA
     Route: 042
     Dates: start: 20140530, end: 20140530
  8. METHOTREXATE [Suspect]
     Indication: NON-HODGKIN^S LYMPHOMA
     Route: 037
     Dates: start: 20140530, end: 20140530
  9. TAHOR [Concomitant]
     Route: 065
  10. SINGULAIR [Concomitant]
     Route: 065
  11. CETIRIZINE [Concomitant]
     Route: 065

REACTIONS (2)
  - Status epilepticus [Recovered/Resolved]
  - Convulsion [Recovered/Resolved]
